FAERS Safety Report 7122180-X (Version None)
Quarter: 2010Q4

REPORT INFORMATION
  Report Type: 
  Country: None (occurrence: None)
  Receive Date: 20101124
  Receipt Date: 20101116
  Transmission Date: 20110411
  Serious: Yes (Hospitalization, Other)
  Sender: FDA-Public Use
  Company Number: US-ELI_LILLY_AND_COMPANY-US201011004415

PATIENT
  Sex: Female
  Weight: 63.039 kg

DRUGS (7)
  1. BYETTA [Suspect]
     Indication: TYPE 2 DIABETES MELLITUS
     Dosage: 10 UG, 2/D
     Route: 058
     Dates: end: 20100901
  2. LANTUS [Concomitant]
     Indication: TYPE 2 DIABETES MELLITUS
     Dosage: UNK, 2/D
  3. GLYBURIDE [Concomitant]
     Indication: TYPE 2 DIABETES MELLITUS
     Dosage: UNK, DAILY (1/D)
     Route: 048
  4. TIMOLOL MALEATE [Concomitant]
     Indication: GLAUCOMA
     Route: 047
  5. TRAVATAN [Concomitant]
     Indication: GLAUCOMA
     Route: 047
  6. SIMVASTATIN [Concomitant]
     Indication: BLOOD CHOLESTEROL INCREASED
  7. ONE A DAY                          /02262701/ [Concomitant]
     Indication: MEDICAL DIET

REACTIONS (14)
  - BLISTER [None]
  - BLOOD CREATININE INCREASED [None]
  - BLOOD UREA INCREASED [None]
  - BURNING SENSATION [None]
  - COLD SWEAT [None]
  - FLATULENCE [None]
  - HERPES ZOSTER [None]
  - MYOCARDIAL INFARCTION [None]
  - NAUSEA [None]
  - NEURALGIA [None]
  - OFF LABEL USE [None]
  - OROPHARYNGEAL PAIN [None]
  - PRURITUS [None]
  - RETCHING [None]
